FAERS Safety Report 5156424-0 (Version None)
Quarter: 2006Q4

REPORT INFORMATION
  Report Type: 
  Country: None (occurrence: None)
  Receive Date: 20061122
  Receipt Date: 20060414
  Transmission Date: 20070319
  Serious: Yes (Other)
  Sender: FDA-Public Use
  Company Number: US-ROCHE-444692

PATIENT
  Age: 47 Year
  Sex: Female

DRUGS (3)
  1. PEGASYS [Suspect]
     Indication: DRUG USE FOR UNKNOWN INDICATION
     Route: 058
     Dates: start: 20060215, end: 20060404
  2. COPEGUS [Suspect]
     Indication: DRUG USE FOR UNKNOWN INDICATION
     Route: 048
     Dates: start: 20060215, end: 20060404
  3. PSYCHOTROPIC DRUG NOS [Concomitant]

REACTIONS (6)
  - ANGER [None]
  - FORMICATION [None]
  - HYPOAESTHESIA [None]
  - MANIA [None]
  - PSYCHOTIC DISORDER [None]
  - RASH [None]
